FAERS Safety Report 16062449 (Version 3)
Quarter: 2019Q2

REPORT INFORMATION
  Report Type: Report from Study
  Country: CA (occurrence: CA)
  Receive Date: 20190312
  Receipt Date: 20190624
  Transmission Date: 20190711
  Serious: Yes (Hospitalization)
  Sender: FDA-Public Use
  Company Number: PHHY2019CA026584

PATIENT
  Age: 41 Year
  Sex: Male
  Weight: 81.8 kg

DRUGS (16)
  1. TRAMETINIB [Interacting]
     Active Substance: TRAMETINIB
     Dosage: 1 MG, QD
     Route: 048
     Dates: start: 20190105
  2. DABRAFENIB [Interacting]
     Active Substance: DABRAFENIB
     Indication: MALIGNANT MELANOMA
     Dosage: 200 MG, UNK
     Route: 048
     Dates: start: 20180813
  3. DABRAFENIB [Interacting]
     Active Substance: DABRAFENIB
     Dosage: 50 MG, BID
     Route: 048
  4. DABRAFENIB [Interacting]
     Active Substance: DABRAFENIB
     Dosage: 100 MG, BID
     Route: 048
  5. CITALOPRAM [Interacting]
     Active Substance: CITALOPRAM HYDROBROMIDE
     Indication: ANXIETY
     Dosage: 10 MG, QD
     Route: 048
     Dates: start: 20190208
  6. TRAMETINIB [Interacting]
     Active Substance: TRAMETINIB
     Dosage: 1 MG, QD
     Route: 048
  7. CITALOPRAM [Interacting]
     Active Substance: CITALOPRAM HYDROBROMIDE
     Indication: DEPRESSION
     Dosage: 10 MG, QD
     Route: 048
     Dates: start: 20190201
  8. DABRAFENIB [Interacting]
     Active Substance: DABRAFENIB
     Dosage: 75 MG, BID
     Route: 048
     Dates: start: 20190207
  9. TRAMETINIB [Suspect]
     Active Substance: TRAMETINIB
     Indication: MALIGNANT MELANOMA
     Dosage: 1.5 MG, UNK
     Route: 048
     Dates: start: 20180813
  10. CITALOPRAM [Interacting]
     Active Substance: CITALOPRAM HYDROBROMIDE
     Dosage: 20 MG, QD
     Route: 048
  11. TRAMETINIB [Interacting]
     Active Substance: TRAMETINIB
     Dosage: 1 MG, QD
     Route: 048
     Dates: start: 20190207
  12. TRAMETINIB [Interacting]
     Active Substance: TRAMETINIB
     Dosage: 0.5 MG, QD
     Route: 048
  13. DABRAFENIB [Interacting]
     Active Substance: DABRAFENIB
     Dosage: 75 MG, BID
     Route: 048
  14. DABRAFENIB [Interacting]
     Active Substance: DABRAFENIB
     Dosage: 75 MG, BID
     Route: 048
     Dates: start: 20190105
  15. TRAMETINIB [Interacting]
     Active Substance: TRAMETINIB
     Dosage: 1 MG, QD
     Route: 048
  16. TRAMETINIB [Interacting]
     Active Substance: TRAMETINIB
     Dosage: 0.5 MG, QD
     Route: 048

REACTIONS (13)
  - Decreased appetite [Not Recovered/Not Resolved]
  - Drug interaction [Unknown]
  - Erythema nodosum [Not Recovered/Not Resolved]
  - Pain [Unknown]
  - Influenza [Unknown]
  - Mucosal inflammation [Not Recovered/Not Resolved]
  - Oedema [Unknown]
  - Diarrhoea [Recovering/Resolving]
  - Nausea [Recovering/Resolving]
  - Weight decreased [Unknown]
  - Stomatitis [Unknown]
  - Vomiting [Recovering/Resolving]
  - Headache [Recovering/Resolving]

NARRATIVE: CASE EVENT DATE: 20190208
